FAERS Safety Report 7514504-6 (Version None)
Quarter: 2011Q2

REPORT INFORMATION
  Report Type: 
  Country: None (occurrence: None)
  Receive Date: 20110601
  Receipt Date: 20101123
  Transmission Date: 20111010
  Serious: No
  Sender: FDA-Public Use
  Company Number: US-BAYER-2010-003471

PATIENT
  Age: 61 Year
  Sex: Female
  Weight: 95.238 kg

DRUGS (9)
  1. ULTRAVIST 150 [Suspect]
     Indication: COMPUTERISED TOMOGRAM ABDOMEN
     Dosage: 200 ML, ONCE
     Route: 042
     Dates: start: 20101123, end: 20101123
  2. ALISKIREN [Concomitant]
     Indication: PRODUCT USED FOR UNKNOWN INDICATION
     Dosage: UNK
  3. METFORMIN HCL [Concomitant]
     Indication: PRODUCT USED FOR UNKNOWN INDICATION
     Dosage: UNK
  4. METHYLPREDNISOLONE [Concomitant]
     Dosage: 32 MG, ONCE
     Route: 048
     Dates: start: 20101123, end: 20101123
  5. ULTRAVIST 150 [Suspect]
     Indication: HYDRONEPHROSIS
  6. CONTRAST MEDIA [Concomitant]
     Indication: COMPUTERISED TOMOGRAM ABDOMEN
     Dosage: UNK
     Route: 048
     Dates: start: 20101123, end: 20101123
  7. NEBIVOLOL HCL [Concomitant]
     Indication: PRODUCT USED FOR UNKNOWN INDICATION
     Dosage: UNK
     Dates: start: 20101122
  8. METHYLPREDNISOLONE [Concomitant]
     Indication: PRODUCT USED FOR UNKNOWN INDICATION
     Dosage: 32 MG, ONCE
     Route: 048
     Dates: start: 20101122, end: 20101122
  9. BENADRYL [Concomitant]
     Indication: PRODUCT USED FOR UNKNOWN INDICATION
     Dosage: 50 MG, ONCE
     Route: 048
     Dates: start: 20101123, end: 20101123

REACTIONS (1)
  - CHEST DISCOMFORT [None]
